FAERS Safety Report 6758405-X (Version None)
Quarter: 2010Q2

REPORT INFORMATION
  Report Type: 
  Country: None (occurrence: None)
  Receive Date: 20100607
  Receipt Date: 20100528
  Transmission Date: 20101027
  Serious: Yes (Other)
  Sender: FDA-Public Use
  Company Number: US-GILEAD-2010-0028688

PATIENT
  Age: 40 Year
  Sex: Female

DRUGS (4)
  1. TRUVADA [Suspect]
     Indication: HIV INFECTION
     Route: 048
     Dates: start: 20091201
  2. ATRIPLA [Suspect]
     Indication: HIV INFECTION
     Route: 048
     Dates: end: 20091101
  3. RITONAVIR [Concomitant]
     Indication: HIV INFECTION
     Dates: start: 20091201
  4. ATAZANAVIR [Concomitant]
     Indication: HIV INFECTION
     Dates: start: 20091201

REACTIONS (4)
  - ABORTION INDUCED [None]
  - AMNIOCENTESIS [None]
  - KLINEFELTER'S SYNDROME [None]
  - MATERNAL DRUGS AFFECTING FOETUS [None]
